FAERS Safety Report 4642163-9 (Version None)
Quarter: 2005Q2

REPORT INFORMATION
  Report Type: 
  Country: None (occurrence: None)
  Receive Date: 20050422
  Receipt Date: 20050413
  Transmission Date: 20051028
  Serious: Yes (Hospitalization)
  Sender: FDA-Public Use
  Company Number: 200511160JP

PATIENT
  Age: 40 Year
  Sex: 0

DRUGS (1)
  1. ALLEGRA [Suspect]

REACTIONS (1)
  - EPILEPSY [None]
